FAERS Safety Report 19062484 (Version 1)
Quarter: 2021Q1

REPORT INFORMATION
  Report Type: Spontaneous
  Country: IN (occurrence: IN)
  Receive Date: 20210326
  Receipt Date: 20210326
  Transmission Date: 20210420
  Serious: No
  Sender: FDA-Public Use
  Company Number: IN-LUPIN LIMITED-2021-03724

PATIENT
  Age: 32 Year
  Sex: Female
  Weight: 55 kg

DRUGS (2)
  1. PEGALUP ORAL SOLUT. 200 ML [Suspect]
     Active Substance: POLYETHYLENE GLYCOL 3350\POTASSIUM CHLORIDE\SODIUM BICARBONATE\SODIUM CHLORIDE
     Indication: CONSTIPATION
     Dosage: 1 WEEK AGO, TWICE DAILY IN THE MORNING AFTER BREAKFAST AND BEFORE BED
     Route: 048
     Dates: start: 2021, end: 2021
  2. VOGLIMIT [Concomitant]
     Indication: BLOOD GLUCOSE ABNORMAL
     Dosage: UNK UNK, QD, 15 MINS BEFORE BREAKFAST (SINCE 3 YEARS)
     Route: 065

REACTIONS (1)
  - Drug ineffective [Unknown]

NARRATIVE: CASE EVENT DATE: 2021
